FAERS Safety Report 5455838-9 (Version None)
Quarter: 2007Q3

REPORT INFORMATION
  Report Type: 
  Country: None (occurrence: None)
  Receive Date: 20070918
  Receipt Date: 20070330
  Transmission Date: 20080115
  Serious: Yes (Other)
  Sender: FDA-Public Use
  Company Number: US-ASTRAZENECA-2006UW23119

PATIENT
  Sex: Female
  Weight: 76.4 kg

DRUGS (4)
  1. SEROQUEL [Suspect]
     Indication: POST-TRAUMATIC STRESS DISORDER
     Route: 048
     Dates: start: 19970101
  2. OLANZAPINE [Concomitant]
     Dates: start: 19960101, end: 19970101
  3. RISPERDAL [Concomitant]
     Dates: start: 19960101
  4. COCAINE [Concomitant]
     Dates: start: 19970101, end: 20050101

REACTIONS (2)
  - BLOOD CHOLESTEROL INCREASED [None]
  - TARDIVE DYSKINESIA [None]
